FAERS Safety Report 15756694 (Version 1)
Quarter: 2018Q4

REPORT INFORMATION
  Report Type: Spontaneous
  Country: CN (occurrence: CN)
  Receive Date: 20181224
  Receipt Date: 20181224
  Transmission Date: 20190205
  Serious: Yes (Hospitalization, Other)
  Sender: FDA-Public Use
  Company Number: CN-NOVOPROD-636078

PATIENT
  Age: 49 Year
  Sex: Male
  Weight: 47 kg

DRUGS (2)
  1. NOVOLIN R [Suspect]
     Active Substance: INSULIN HUMAN
     Indication: TYPE 1 DIABETES MELLITUS
     Dosage: 3-4 U ACCORDING BLOOD SUGAR VALUE
     Route: 065
  2. BASALIN [Suspect]
     Active Substance: INSULIN GLARGINE
     Indication: TYPE 1 DIABETES MELLITUS
     Dosage: 8 U, QD (3U IN THE MORNING AND 5U BEFORE SLEEP)
     Route: 065

REACTIONS (4)
  - Neuropathy peripheral [Unknown]
  - Blood glucose fluctuation [Recovered/Resolved]
  - Arteriosclerosis [Recovering/Resolving]
  - Diabetic retinopathy [Recovering/Resolving]
